FAERS Safety Report 17363437 (Version 1)
Quarter: 2020Q1

REPORT INFORMATION
  Report Type: Spontaneous
  Country: US (occurrence: US)
  Receive Date: 20200203
  Receipt Date: 20200203
  Transmission Date: 20200409
  Serious: Yes (Death, Other)
  Sender: FDA-Public Use
  Company Number: US-B.I. PHARMACEUTICALS,INC./RIDGEFIELD-2020-US-006128

PATIENT
  Sex: Male

DRUGS (1)
  1. APTIVUS [Suspect]
     Active Substance: TIPRANAVIR
     Indication: PRODUCT USED FOR UNKNOWN INDICATION
     Dosage: NR ORAL SOLUTION, 100MG/ML
     Route: 065

REACTIONS (1)
  - Death [Fatal]

NARRATIVE: CASE EVENT DATE: 2020
